FAERS Safety Report 17767453 (Version 2)
Quarter: 2020Q3

REPORT INFORMATION
  Report Type: Report from Study
  Country: US (occurrence: US)
  Receive Date: 20200511
  Receipt Date: 20200826
  Transmission Date: 20201102
  Serious: No
  Sender: FDA-Public Use
  Company Number: NVSC2020US126804

PATIENT
  Age: 63 Year
  Sex: Male

DRUGS (1)
  1. ENTRESTO [Suspect]
     Active Substance: SACUBITRIL\VALSARTAN
     Indication: PRODUCT USED FOR UNKNOWN INDICATION
     Dosage: 97 MG, BID (97/103 MG)
     Route: 048
     Dates: start: 2018

REACTIONS (7)
  - Pain [Unknown]
  - Stress [Not Recovered/Not Resolved]
  - Dyspnoea [Not Recovered/Not Resolved]
  - Weight decreased [Recovering/Resolving]
  - Blood cholesterol increased [Not Recovered/Not Resolved]
  - Gait disturbance [Not Recovered/Not Resolved]
  - Fatigue [Not Recovered/Not Resolved]
